FAERS Safety Report 8521220-0 (Version None)
Quarter: 2012Q3

REPORT INFORMATION
  Report Type: 
  Country: None (occurrence: None)
  Receive Date: 20120719
  Receipt Date: 20120710
  Transmission Date: 20120928
  Serious: Yes (Hospitalization)
  Sender: FDA-Public Use
  Company Number: US-ASTRAZENECA-2011SE28481

PATIENT
  Age: 57 Year
  Sex: Male

DRUGS (2)
  1. PRILOSEC [Suspect]
     Route: 048
  2. NEXIUM [Suspect]
     Route: 048

REACTIONS (9)
  - DRUG DOSE OMISSION [None]
  - GASTROOESOPHAGEAL REFLUX DISEASE [None]
  - DRUG INEFFECTIVE [None]
  - SLEEP APNOEA SYNDROME [None]
  - BLOOD PRESSURE INCREASED [None]
  - ADVERSE EVENT [None]
  - MIGRAINE [None]
  - MALAISE [None]
  - CHOLELITHIASIS [None]
